FAERS Safety Report 26139880 (Version 1)
Quarter: 2025Q4

REPORT INFORMATION
  Report Type: Spontaneous
  Country: US (occurrence: None)
  Receive Date: 20251209
  Receipt Date: 20251209
  Transmission Date: 20260117
  Serious: Yes (Disabling)
  Sender: FDA-CTU
  Company Number: None

PATIENT
  Age: 73 Year
  Sex: Female
  Weight: 78.47 kg

DRUGS (22)
  1. REPATHA [Suspect]
     Active Substance: EVOLOCUMAB
     Indication: Hypercholesterolaemia
     Dosage: FREQUENCY : EVERY OTHER WEEK;?OTHER ROUTE : SELF INJECTION;
     Route: 050
     Dates: start: 20250701, end: 20250729
  2. FAMITODINE [Concomitant]
  3. CLARITIDINE [Concomitant]
  4. LORATADINE [Concomitant]
     Active Substance: LORATADINE
  5. CRANBERRY PILLS [Concomitant]
  6. ACIDOPHYLLIS [Concomitant]
  7. ALBUTEROL SULFATE [Concomitant]
     Active Substance: ALBUTEROL SULFATE
  8. ANORO ELLIPTA [Concomitant]
     Active Substance: UMECLIDINIUM BROMIDE\VILANTEROL TRIFENATATE
  9. ATROVENT [Concomitant]
     Active Substance: IPRATROPIUM BROMIDE
  10. DULOXETINE [Concomitant]
     Active Substance: DULOXETINE
  11. EPINEPHRINE [Concomitant]
     Active Substance: EPINEPHRINE
  12. ESOMEPRAZOLE [Concomitant]
     Active Substance: ESOMEPRAZOLE
  13. LORAZEPAM [Concomitant]
     Active Substance: LORAZEPAM
  14. ZOLPIDEM [Concomitant]
     Active Substance: ZOLPIDEM TARTRATE
  15. MIEBO [Concomitant]
     Active Substance: PERFLUOROHEXYLOCTANE
  16. HYDROXYZINE [Concomitant]
     Active Substance: HYDROXYZINE HYDROCHLORIDE
  17. MONTELUKAST [Concomitant]
     Active Substance: MONTELUKAST
  18. METOPROLOL [Concomitant]
     Active Substance: METOPROLOL
  19. AMLODIPINE [Concomitant]
     Active Substance: AMLODIPINE BESYLATE
  20. GABAPENTIN [Concomitant]
     Active Substance: GABAPENTIN
  21. CLOPIDOGREL [Concomitant]
     Active Substance: CLOPIDOGREL BISULFATE
  22. ROSUVASTATIN [Concomitant]
     Active Substance: ROSUVASTATIN

REACTIONS (3)
  - Rhinorrhoea [None]
  - Back pain [None]
  - Oropharyngeal pain [None]

NARRATIVE: CASE EVENT DATE: 20250701
